FAERS Safety Report 7787372-5 (Version None)
Quarter: 2011Q3

REPORT INFORMATION
  Report Type: 
  Country: None (occurrence: None)
  Receive Date: 20110929
  Receipt Date: 20110919
  Transmission Date: 20111222
  Serious: Yes (Other)
  Sender: FDA-Public Use
  Company Number: PHEH2011US04473

PATIENT
  Age: 84 Year
  Sex: Female

DRUGS (8)
  1. VALTURNA [Suspect]
     Dosage: 1 DF(150MG/160MG), BID
  2. VANTELIN [Concomitant]
     Dosage: UNK UKN, PRN
  3. BRIMONIDINE TARTRATE [Concomitant]
     Dosage: UNK UKN, UNK
  4. DORZOLAMIDE [Concomitant]
     Dosage: UNK UKN, UNK
  5. LEVOTHYROXINE [Concomitant]
     Dosage: 1000 UG, QD
  6. TRAVATAN [Concomitant]
     Dosage: UNK UKN, UNK
  7. ASPIRIN [Concomitant]
     Dosage: UNK UKN, UNK
  8. METOPROLOL TARTRATE [Concomitant]
     Dosage: 50 MG, BID

REACTIONS (5)
  - GLAUCOMA [None]
  - CATARACT [None]
  - BLINDNESS UNILATERAL [None]
  - CHRONIC OBSTRUCTIVE PULMONARY DISEASE [None]
  - HIP FRACTURE [None]
